FAERS Safety Report 19550679 (Version 1)
Quarter: 2021Q3

REPORT INFORMATION
  Report Type: Spontaneous
  Country: US (occurrence: US)
  Receive Date: 20210714
  Receipt Date: 20210714
  Transmission Date: 20211014
  Serious: Yes (Hospitalization)
  Sender: FDA-Public Use
  Company Number: US-ROCHE-2867445

PATIENT
  Age: 70 Year
  Sex: Female
  Weight: 122.58 kg

DRUGS (4)
  1. RITUXAN [Suspect]
     Active Substance: RITUXIMAB
     Indication: MICROSCOPIC POLYANGIITIS
     Dosage: 2 DOSES, 2 WEEKS APART, EVERY 6 MONTHS ;ONGOING: YES
     Route: 041
  2. IRON [Concomitant]
     Active Substance: IRON
     Route: 048
  3. VITAMIN D [ERGOCALCIFEROL] [Concomitant]
     Active Substance: ERGOCALCIFEROL
     Route: 048
  4. ELIQUIS [Concomitant]
     Active Substance: APIXABAN
     Indication: ANTICOAGULANT THERAPY
     Dosage: TAKEN MORNING AND NIGHT
     Route: 048

REACTIONS (5)
  - Blood iron decreased [Not Recovered/Not Resolved]
  - Vitamin D decreased [Not Recovered/Not Resolved]
  - Thrombosis [Not Recovered/Not Resolved]
  - Hypertension [Not Recovered/Not Resolved]
  - Blister [Recovered/Resolved]

NARRATIVE: CASE EVENT DATE: 20210519
